FAERS Safety Report 8156850-1 (Version None)
Quarter: 2012Q1

REPORT INFORMATION
  Report Type: 
  Country: None (occurrence: None)
  Receive Date: 20120222
  Receipt Date: 20120215
  Transmission Date: 20120608
  Serious: Yes (Congenital Anomaly)
  Sender: FDA-Public Use
  Company Number: US-GLAXOSMITHKLINE-A0964005A

PATIENT
  Sex: Female
  Weight: 2.3 kg

DRUGS (8)
  1. ZITHROMAX [Concomitant]
  2. VENTOLIN [Concomitant]
  3. PAXIL [Suspect]
     Indication: PRODUCT USED FOR UNKNOWN INDICATION
     Route: 064
  4. IV FLUIDS [Concomitant]
  5. IRON [Concomitant]
  6. VITAMIN [Concomitant]
  7. ROCEPHIN [Concomitant]
  8. BRETHINE [Concomitant]

REACTIONS (9)
  - FOETAL EXPOSURE DURING PREGNANCY [None]
  - CONGENITAL MUSCULOSKELETAL ANOMALY [None]
  - RADIOULNAR SYNOSTOSIS [None]
  - HEART DISEASE CONGENITAL [None]
  - ATRIAL SEPTAL DEFECT [None]
  - CONGENITAL HAND MALFORMATION [None]
  - HOLT-ORAM SYNDROME [None]
  - VENTRICULAR SEPTAL DEFECT [None]
  - PATENT DUCTUS ARTERIOSUS [None]
